FAERS Safety Report 23666984 (Version 2)
Quarter: 2024Q1

REPORT INFORMATION
  Report Type: Spontaneous
  Country: SE (occurrence: SE)
  Receive Date: 20240325
  Receipt Date: 20240328
  Transmission Date: 20240409
  Serious: Yes (Hospitalization)
  Sender: FDA-Public Use
  Company Number: SE-NOVOPROD-1191461

PATIENT
  Age: 80 Year
  Sex: Female

DRUGS (6)
  1. VAGIFEM [Suspect]
     Active Substance: ESTRADIOL
     Indication: Dyspareunia
     Dosage: 25 ?G, BIW
  2. VAGIFEM [Suspect]
     Active Substance: ESTRADIOL
     Indication: Vulvovaginal dryness
     Dosage: 10 ?G, TIW
  3. URSODIOL [Concomitant]
     Active Substance: URSODIOL
     Indication: Liver disorder
     Dosage: UNK
  4. CALCIUM CARBONATE [Concomitant]
     Active Substance: CALCIUM CARBONATE
     Indication: Product used for unknown indication
     Dosage: MORNING AND EVENING
  5. VITAMIN B12 [Concomitant]
     Active Substance: CYANOCOBALAMIN
     Indication: Product used for unknown indication
     Dosage: 100 MG
  6. DIETARY SUPPLEMENT\UBIDECARENONE [Concomitant]
     Active Substance: DIETARY SUPPLEMENT\UBIDECARENONE
     Indication: Product used for unknown indication
     Dosage: 100 MG

REACTIONS (3)
  - Pain in jaw [Unknown]
  - Angina pectoris [Unknown]
  - Off label use [Unknown]
